FAERS Safety Report 6326913-1 (Version None)
Quarter: 2009Q3

REPORT INFORMATION
  Report Type: 
  Country: None (occurrence: None)
  Receive Date: 20090821
  Receipt Date: 20090810
  Transmission Date: 20100115
  Serious: Yes (Hospitalization)
  Sender: FDA-Public Use
  Company Number: VISP-NO-0908S-0364

PATIENT
  Age: 49 Year
  Sex: Female
  Weight: 70 kg

DRUGS (1)
  1. VISIPAQUE [Suspect]
     Indication: RADICULOPATHY
     Dosage: 10 ML, I.T.
     Route: 037
     Dates: start: 20090605, end: 20090605

REACTIONS (1)
  - MENINGITIS CHEMICAL [None]
